FAERS Safety Report 22598035 (Version 1)
Quarter: 2023Q2

REPORT INFORMATION
  Report Type: Report from Study
  Country: US (occurrence: US)
  Receive Date: 20230614
  Receipt Date: 20230614
  Transmission Date: 20230721
  Serious: Yes (Other)
  Sender: FDA-Public Use
  Company Number: US-CLOVIS ONCOLOGY-CLO-2023-000359

PATIENT
  Age: 66 Year
  Sex: Female

DRUGS (6)
  1. RUBRACA [Suspect]
     Active Substance: RUCAPARIB CAMSYLATE
     Indication: Ovarian cancer
     Dosage: 1 TABLET/DAY FOR 3 DAYS
     Route: 048
     Dates: start: 202304, end: 202304
  2. RUBRACA [Suspect]
     Active Substance: RUCAPARIB CAMSYLATE
     Indication: Breast cancer female
     Dosage: 2 TABLET/DAY FOR 3 DAYS
     Dates: start: 202304, end: 202304
  3. RUBRACA [Suspect]
     Active Substance: RUCAPARIB CAMSYLATE
     Dosage: 3 TABLET/DAY FOR 3 DAYS
     Dates: start: 202304, end: 202304
  4. RUBRACA [Suspect]
     Active Substance: RUCAPARIB CAMSYLATE
     Dosage: 4 TABLET/DAY FOR 3 DAYS
     Dates: start: 202304, end: 202304
  5. RUBRACA [Suspect]
     Active Substance: RUCAPARIB CAMSYLATE
     Dosage: 600 MILLIGRAM, BID
     Route: 048
     Dates: start: 202304
  6. RUBRACA [Suspect]
     Active Substance: RUCAPARIB CAMSYLATE
     Dosage: 600 MILLIGRAM, BID
     Route: 048
     Dates: start: 202305

REACTIONS (5)
  - Neuropathy peripheral [Unknown]
  - Anxiety [Not Recovered/Not Resolved]
  - Pain [Unknown]
  - Photosensitivity reaction [Unknown]
  - Sunburn [Unknown]

NARRATIVE: CASE EVENT DATE: 20230501
